FAERS Safety Report 20437211 (Version 1)
Quarter: 2022Q1

REPORT INFORMATION
  Report Type: Spontaneous
  Country: US (occurrence: US)
  Receive Date: 20220207
  Receipt Date: 20220207
  Transmission Date: 20220423
  Serious: Yes (Other)
  Sender: FDA-Public Use
  Company Number: US-GLAXOSMITHKLINE-US2022GSK017829

PATIENT
  Sex: Male

DRUGS (8)
  1. ZANTAC [Suspect]
     Active Substance: RANITIDINE HYDROCHLORIDE
     Indication: Product used for unknown indication
     Dosage: 150MG TO 299MG MG, WE
     Route: 065
     Dates: start: 199502, end: 201910
  2. ZANTAC [Suspect]
     Active Substance: RANITIDINE HYDROCHLORIDE
     Dosage: 150MG TO 299MG A WEEK MG, QD
     Route: 065
     Dates: start: 199502, end: 201910
  3. ZANTAC [Suspect]
     Active Substance: RANITIDINE HYDROCHLORIDE
     Indication: Product used for unknown indication
     Dosage: 150MG TO 299MG, WE
     Route: 065
     Dates: start: 199502, end: 201910
  4. ZANTAC [Suspect]
     Active Substance: RANITIDINE HYDROCHLORIDE
     Dosage: 150MG TO 299MG A WEEK, QD
     Route: 065
     Dates: start: 199502, end: 201910
  5. RANITIDINE HYDROCHLORIDE [Suspect]
     Active Substance: RANITIDINE HYDROCHLORIDE
     Indication: Product used for unknown indication
     Dosage: 150MG TO 299MG MG, WE
     Route: 065
     Dates: start: 199502, end: 201910
  6. RANITIDINE HYDROCHLORIDE [Suspect]
     Active Substance: RANITIDINE HYDROCHLORIDE
     Dosage: 150MG TO 299MG MG A WEEK, QD
     Route: 065
     Dates: start: 199502, end: 201910
  7. RANITIDINE HYDROCHLORIDE [Suspect]
     Active Substance: RANITIDINE HYDROCHLORIDE
     Indication: Product used for unknown indication
     Dosage: 150MG TO 299MG, WE
     Route: 065
     Dates: start: 199502, end: 201910
  8. RANITIDINE HYDROCHLORIDE [Suspect]
     Active Substance: RANITIDINE HYDROCHLORIDE
     Dosage: 150MG TO 299MG A WEEK, QD
     Route: 065
     Dates: start: 199502, end: 201910

REACTIONS (1)
  - Prostate cancer [Unknown]
